FAERS Safety Report 13096883 (Version 1)
Quarter: 2017Q1

REPORT INFORMATION
  Report Type: Spontaneous
  Country: US (occurrence: US)
  Receive Date: 20170106
  Receipt Date: 20170106
  Transmission Date: 20170428
  Serious: Yes (Life-Threatening, Hospitalization)
  Sender: FDA-Public Use
  Company Number: None

PATIENT
  Age: 76 Year
  Sex: Female

DRUGS (9)
  1. ISOSORBIDE. [Concomitant]
     Active Substance: ISOSORBIDE
  2. LISINOPRIL. [Concomitant]
     Active Substance: LISINOPRIL
  3. TRAZODONE [Concomitant]
     Active Substance: TRAZODONE HYDROCHLORIDE
  4. SYMBICORT [Concomitant]
     Active Substance: BUDESONIDE\FORMOTEROL FUMARATE DIHYDRATE
  5. DULOXETINE. [Concomitant]
     Active Substance: DULOXETINE
  6. CLOPIDOGREL [Concomitant]
     Active Substance: CLOPIDOGREL BISULFATE
  7. GEMFIBROZIL. [Concomitant]
     Active Substance: GEMFIBROZIL
  8. ARIPIPRAZOLE. [Suspect]
     Active Substance: ARIPIPRAZOLE
     Indication: DEPRESSION
     Dosage: ?          QUANTITY:1 TABLET(S);?
     Route: 048
     Dates: start: 20161203, end: 20161204
  9. METOPROLOL. [Concomitant]
     Active Substance: METOPROLOL

REACTIONS (5)
  - Rash [None]
  - Pruritus [None]
  - Nausea [None]
  - Obstructive airways disorder [None]
  - Pharyngeal oedema [None]

NARRATIVE: CASE EVENT DATE: 20161203
